FAERS Safety Report 8175079-4 (Version None)
Quarter: 2012Q1

REPORT INFORMATION
  Report Type: 
  Country: None (occurrence: None)
  Receive Date: 20120229
  Receipt Date: 20120222
  Transmission Date: 20120608
  Serious: Yes (Hospitalization, Other)
  Sender: FDA-Public Use
  Company Number: PHHY2012AU015838

PATIENT
  Sex: Female

DRUGS (2)
  1. ESTRADERM [Suspect]
     Route: 062
  2. ESTRADERM [Suspect]
     Dosage: 0.5 DF, UNK
     Route: 062

REACTIONS (5)
  - THROAT TIGHTNESS [None]
  - ANXIETY [None]
  - HYPOAESTHESIA ORAL [None]
  - STRESS [None]
  - WRONG TECHNIQUE IN DRUG USAGE PROCESS [None]
